FAERS Safety Report 13404573 (Version 1)
Quarter: 2017Q2

REPORT INFORMATION
  Report Type: Spontaneous
  Country: US (occurrence: US)
  Receive Date: 20170405
  Receipt Date: 20170405
  Transmission Date: 20170830
  Serious: No
  Sender: FDA-Public Use
  Company Number: US-PERRIGO-16US020373

PATIENT
  Sex: Male
  Weight: 95.24 kg

DRUGS (1)
  1. ACETAMINOPHEN. [Suspect]
     Active Substance: ACETAMINOPHEN
     Indication: ARTHRALGIA
     Dosage: 650 MG, TID
     Route: 048
     Dates: start: 2015

REACTIONS (2)
  - Incorrect drug administration duration [Unknown]
  - Underdose [Unknown]

NARRATIVE: CASE EVENT DATE: 2015
